FAERS Safety Report 6575411-9 (Version None)
Quarter: 2010Q1

REPORT INFORMATION
  Report Type: 
  Country: None (occurrence: None)
  Receive Date: 20100209
  Receipt Date: 20100209
  Transmission Date: 20100710
  Serious: Yes (Death, Other)
  Sender: FDA-Public Use
  Company Number: GB-ABBOTT-09P-167-0577987-00

PATIENT
  Age: 38 Year
  Sex: Female
  Weight: 70 kg

DRUGS (3)
  1. KALETRA [Suspect]
     Indication: DRUG USE FOR UNKNOWN INDICATION
     Dates: start: 20081028
  2. COMBIVIR [Suspect]
     Indication: DRUG USE FOR UNKNOWN INDICATION
     Dates: start: 20081028
  3. LOMOTIL [Concomitant]
     Indication: DIARRHOEA
     Dates: start: 20081101

REACTIONS (4)
  - ENDOMETRIAL DISORDER [None]
  - STILLBIRTH [None]
  - UMBILICAL CORD VASCULAR DISORDER [None]
  - VENOUS THROMBOSIS [None]
